FAERS Safety Report 6831952-8 (Version None)
Quarter: 2010Q3

REPORT INFORMATION
  Report Type: 
  Country: None (occurrence: None)
  Receive Date: 20100712
  Receipt Date: 20100705
  Transmission Date: 20110219
  Serious: Yes (Other)
  Sender: FDA-Public Use
  Company Number: BR-ROCHE-691307

PATIENT
  Sex: Male
  Weight: 72 kg

DRUGS (7)
  1. RIVOTRIL [Suspect]
     Indication: ANXIETY
     Route: 048
     Dates: start: 19940101, end: 20020101
  2. RIVOTRIL [Suspect]
     Dosage: DOSE REPORTED AS 2.5 MG/ML
     Route: 048
     Dates: start: 20060101
  3. RIVOTRIL [Suspect]
     Dosage: BATCH NUMBER: RJ0425
     Route: 048
     Dates: start: 20091001
  4. ENALAPRIL MALEATE [Concomitant]
     Indication: HYPERTENSION
     Dates: start: 20000101
  5. AMLOVASC [Concomitant]
     Indication: HYPERTENSION
     Dates: start: 20000101
  6. CITALOPRAM HYDROBROMIDE [Concomitant]
     Indication: DEPRESSION
     Route: 048
     Dates: start: 20020101
  7. SIMVASTATIN [Concomitant]
     Indication: BLOOD CHOLESTEROL ABNORMAL
     Dates: start: 20050101

REACTIONS (7)
  - DEPENDENCE [None]
  - DEPRESSED MOOD [None]
  - DEPRESSION [None]
  - INTERMITTENT CLAUDICATION [None]
  - LOSS OF LIBIDO [None]
  - MEDICATION ERROR [None]
  - SEXUAL DYSFUNCTION [None]
